FAERS Safety Report 14182531 (Version 4)
Quarter: 2018Q1

REPORT INFORMATION
  Report Type: Spontaneous
  Country: US (occurrence: US)
  Receive Date: 20171113
  Receipt Date: 20180312
  Transmission Date: 20180508
  Serious: Yes (Hospitalization)
  Sender: FDA-Public Use
  Company Number: US-PFIZER INC-2017482493

PATIENT
  Age: 88 Year
  Sex: Female
  Weight: 49.9 kg

DRUGS (4)
  1. CADUET [Suspect]
     Active Substance: AMLODIPINE BESYLATE\ATORVASTATIN CALCIUM
     Dosage: 1 DF, DAILY [AMLODIPINE BESILATE 5MG]- [ATORVASTATIN CALCIUM 10MG]
     Route: 048
  2. CADUET [Suspect]
     Active Substance: AMLODIPINE BESYLATE\ATORVASTATIN CALCIUM
     Dosage: AMLODIPINE BESYLATE 5 MG/ATORVASTATIN CALCIUM 10 MG, EVERY DAY
     Route: 048
     Dates: start: 2002
  3. LEVOTHYROXINE. [Concomitant]
     Active Substance: LEVOTHYROXINE
     Dosage: UNK
  4. OMEPRAZOLE. [Concomitant]
     Active Substance: OMEPRAZOLE
     Dosage: UNK

REACTIONS (4)
  - Malaise [Recovered/Resolved with Sequelae]
  - Hypoacusis [Unknown]
  - Hyponatraemia [Unknown]
  - Fatigue [Unknown]

NARRATIVE: CASE EVENT DATE: 201710
